FAERS Safety Report 5188326-8 (Version None)
Quarter: 2006Q4

REPORT INFORMATION
  Report Type: 
  Country: None (occurrence: None)
  Receive Date: 20061221
  Receipt Date: 20061115
  Transmission Date: 20070319
  Serious: Yes (Other)
  Sender: FDA-Public Use
  Company Number: US-ELI_LILLY_AND_COMPANY-US200611003431

PATIENT
  Age: 69 Year
  Sex: Female

DRUGS (8)
  1. FORTEO [Suspect]
     Indication: OSTEOPOROSIS
     Dosage: 20 UG, DAILY (1/D)
     Dates: start: 20061115
  2. TYLENOL W/ CODEINE NO. 4 [Concomitant]
  3. NEXIUM [Concomitant]
  4. TOPROL-XL [Concomitant]
  5. HYDROCHLOROTHIAZIDE [Concomitant]
  6. PLAVIX                                  /UNK/ [Concomitant]
  7. LEXAPRO                                 /USA/ [Concomitant]
  8. FEMARA [Concomitant]

REACTIONS (4)
  - BREAST CANCER [None]
  - BREAST CANCER FEMALE [None]
  - PHARMACEUTICAL PRODUCT COMPLAINT [None]
  - THROAT CANCER [None]
